FAERS Safety Report 17742064 (Version 1)
Quarter: 2020Q2

REPORT INFORMATION
  Report Type: Spontaneous
  Country: DE (occurrence: DE)
  Receive Date: 20200504
  Receipt Date: 20200504
  Transmission Date: 20200714
  Serious: Yes (Other)
  Sender: FDA-Public Use
  Company Number: NVSC2020DE119531

PATIENT
  Sex: Male
  Weight: 67 kg

DRUGS (2)
  1. HIDROXYUREA [Concomitant]
     Indication: BONE MARROW DISORDER
     Dosage: 1000 MG
     Route: 065
  2. EXJADE [Suspect]
     Active Substance: DEFERASIROX
     Indication: PRODUCT USED FOR UNKNOWN INDICATION
     Dosage: 360 MG, QD(5 DF)
     Route: 065
     Dates: start: 2018

REACTIONS (6)
  - Serum ferritin decreased [Unknown]
  - Diarrhoea [Not Recovered/Not Resolved]
  - Pulmonary embolism [Unknown]
  - Gastrointestinal haemorrhage [Unknown]
  - Overdose [Unknown]
  - Gastrointestinal disorder [Not Recovered/Not Resolved]

NARRATIVE: CASE EVENT DATE: 2019
